FAERS Safety Report 17279616 (Version 2)
Quarter: 2020Q1

REPORT INFORMATION
  Report Type: Spontaneous
  Country: US (occurrence: US)
  Receive Date: 20200116
  Receipt Date: 20200130
  Transmission Date: 20200409
  Serious: No
  Sender: FDA-Public Use
  Company Number: NVSC2020US009767

PATIENT
  Sex: Female

DRUGS (2)
  1. MAYZENT [Suspect]
     Active Substance: SIPONIMOD
     Indication: PRODUCT USED FOR UNKNOWN INDICATION
     Dosage: UNK
     Route: 065
  2. MAYZENT [Suspect]
     Active Substance: SIPONIMOD
     Route: 065

REACTIONS (4)
  - Feeling abnormal [Unknown]
  - Gait disturbance [Unknown]
  - Pruritus [Unknown]
  - Skin hyperpigmentation [Unknown]
